FAERS Safety Report 14411181 (Version 1)
Quarter: 2018Q1

REPORT INFORMATION
  Report Type: Spontaneous
  Country: US (occurrence: US)
  Receive Date: 20180117
  Receipt Date: 20180117
  Transmission Date: 20180509
  Serious: Yes (Hospitalization)
  Sender: FDA-Public Use
  Company Number: None

PATIENT
  Age: 68 Year
  Sex: Female

DRUGS (12)
  1. GABAPENTIN. [Concomitant]
     Active Substance: GABAPENTIN
  2. ENOXAPARIN [Concomitant]
     Active Substance: ENOXAPARIN
  3. XELJANZ [Suspect]
     Active Substance: TOFACITINIB CITRATE
     Indication: RHEUMATOID ARTHRITIS
     Dosage: UNK- 1/2016 WITH ALLIANCERXWP
     Route: 048
     Dates: end: 201601
  4. TRIAMTERENE. [Concomitant]
     Active Substance: TRIAMTERENE
  5. ONDANSETRON [Concomitant]
     Active Substance: ONDANSETRON
  6. CELECOXIB. [Concomitant]
     Active Substance: CELECOXIB
  7. MAPAP [Concomitant]
     Active Substance: ACETAMINOPHEN
  8. DILTIAZEM. [Concomitant]
     Active Substance: DILTIAZEM
  9. LANSOPRAZOLE. [Concomitant]
     Active Substance: LANSOPRAZOLE
  10. METHOTREXATE. [Concomitant]
     Active Substance: METHOTREXATE
  11. OXYCODONE [Concomitant]
     Active Substance: OXYCODONE
  12. LEVOTHYROXIN [Concomitant]
     Active Substance: LEVOTHYROXINE

REACTIONS (3)
  - Knee operation [None]
  - Pain [None]
  - Loss of personal independence in daily activities [None]

NARRATIVE: CASE EVENT DATE: 201801
